FAERS Safety Report 4352178-6 (Version None)
Quarter: 2004Q2

REPORT INFORMATION
  Report Type: 
  Country: None (occurrence: None)
  Receive Date: 20040504
  Receipt Date: 20040427
  Transmission Date: 20050107
  Serious: Yes (Hospitalization)
  Sender: FDA-Public Use
  Company Number: 200413256US

PATIENT
  Sex: Male
  Weight: 79.54 kg

DRUGS (7)
  1. DOCETAXEL [Suspect]
     Indication: SMALL CELL LUNG CANCER STAGE UNSPECIFIED
     Route: 042
     Dates: start: 20040202
  2. IRINOTECAN [Suspect]
     Indication: SMALL CELL LUNG CANCER STAGE UNSPECIFIED
     Route: 042
     Dates: start: 20040202
  3. CARBOPLATIN [Suspect]
     Indication: SMALL CELL LUNG CANCER STAGE UNSPECIFIED
     Dosage: DOSE: AUC 5
     Dates: start: 20040202
  4. CEFOTAXIME [Suspect]
     Indication: PNEUMONIA
  5. DECADRON [Concomitant]
  6. PRAVACHOL [Concomitant]
  7. PERCOCET [Concomitant]

REACTIONS (29)
  - ANAEMIA [None]
  - ASCITES [None]
  - ASTHENIA [None]
  - ATELECTASIS [None]
  - BLOOD ALBUMIN DECREASED [None]
  - BLOOD CALCIUM DECREASED [None]
  - BLOOD CREATININE INCREASED [None]
  - BLOOD PH DECREASED [None]
  - BLOOD POTASSIUM DECREASED [None]
  - BLOOD SODIUM DECREASED [None]
  - BLOOD UREA INCREASED [None]
  - BLOOD URIC ACID INCREASED [None]
  - CANDIDIASIS [None]
  - CULTURE URINE POSITIVE [None]
  - DEHYDRATION [None]
  - DIARRHOEA [None]
  - DIZZINESS [None]
  - HYPOKALAEMIA [None]
  - LEUKOCYTOSIS [None]
  - LUNG INFILTRATION [None]
  - METABOLIC ACIDOSIS [None]
  - PANCYTOPENIA [None]
  - PCO2 DECREASED [None]
  - PNEUMONIA [None]
  - PO2 INCREASED [None]
  - RENAL CYST [None]
  - RENAL FAILURE [None]
  - RENAL FAILURE ACUTE [None]
  - WHITE BLOOD CELL COUNT INCREASED [None]
